FAERS Safety Report 9442672 (Version 1)
Quarter: 2013Q3

REPORT INFORMATION
  Report Type: Spontaneous
  Country: US (occurrence: None)
  Receive Date: 20130805
  Receipt Date: 20130805
  Transmission Date: 20140515
  Serious: Yes (Hospitalization)
  Sender: FDA-Public Use
  Company Number: None

PATIENT
  Age: 85 Year
  Sex: Female

DRUGS (1)
  1. TIKOSYN [Suspect]
     Indication: ATRIAL FIBRILLATION
     Route: 048
     Dates: start: 20130514

REACTIONS (7)
  - Urinary tract infection [None]
  - Drug hypersensitivity [None]
  - Fall [None]
  - Unresponsive to stimuli [None]
  - Cardiac failure congestive [None]
  - Renal disorder [None]
  - Gastric ulcer perforation [None]
